FAERS Safety Report 10288390 (Version 1)
Quarter: 2014Q3

REPORT INFORMATION
  Report Type: Spontaneous
  Country: US (occurrence: US)
  Receive Date: 20140709
  Receipt Date: 20140709
  Transmission Date: 20150326
  Serious: Yes (Hospitalization)
  Sender: FDA-Public Use
  Company Number: US-ACTAVIS-2014-14694

PATIENT
  Age: 66 Year
  Sex: Male

DRUGS (4)
  1. CLARITHROMYCIN EXTENDED-RELEASE [Suspect]
     Active Substance: CLARITHROMYCIN
     Indication: BRONCHITIS
     Dosage: 250 MG, BID
     Route: 065
  2. ILOPERIDONE [Interacting]
     Active Substance: ILOPERIDONE
     Indication: MAJOR DEPRESSION
     Dosage: 24 MG, DAILY
     Route: 065
  3. PAROXETINE [Interacting]
     Active Substance: PAROXETINE\PAROXETINE HYDROCHLORIDE
     Indication: MAJOR DEPRESSION
     Dosage: 40 MG, DAILY
     Route: 065
  4. METFORMIN [Concomitant]
     Active Substance: METFORMIN HYDROCHLORIDE
     Indication: TYPE 2 DIABETES MELLITUS
     Dosage: UNK
     Route: 065

REACTIONS (4)
  - Electrocardiogram QT prolonged [Unknown]
  - Dizziness [Unknown]
  - Presyncope [Unknown]
  - Drug interaction [Unknown]
